FAERS Safety Report 16314859 (Version 1)
Quarter: 2019Q2

REPORT INFORMATION
  Report Type: Spontaneous
  Country: GB (occurrence: GB)
  Receive Date: 20190515
  Receipt Date: 20190515
  Transmission Date: 20190711
  Serious: Yes (Other)
  Sender: FDA-Public Use
  Company Number: GB-PFIZER INC-2019199717

PATIENT
  Age: 74 Year
  Sex: Female
  Weight: 82 kg

DRUGS (8)
  1. VENTOLIN [Concomitant]
     Active Substance: ALBUTEROL SULFATE
     Dosage: 2 DF, AS NEEDED
     Route: 055
     Dates: start: 20180104
  2. CYANOCOBALAMIN. [Concomitant]
     Active Substance: CYANOCOBALAMIN
     Dosage: 1 DF, 1X/DAY
     Dates: start: 20181023
  3. AMLODIPINE [Concomitant]
     Active Substance: AMLODIPINE BESYLATE
     Dosage: 1 DF, 1X/DAY
     Dates: start: 20181023
  4. BENDROFLUMETHIAZIDE [Concomitant]
     Active Substance: BENDROFLUMETHIAZIDE
     Dosage: 1 DF, 1X/DAY (EACH MORNING)
     Dates: start: 20181023
  5. FOSTAIR [Concomitant]
     Active Substance: BECLOMETHASONE\FORMOTEROL
     Dosage: 4 DF, 1X/DAY (4 PUFFS)
     Dates: start: 20190103
  6. STEXEROL D3 [Concomitant]
     Dosage: 1 DF, 1X/DAY
     Dates: start: 20181023
  7. CINNARIZINE [Concomitant]
     Active Substance: CINNARIZINE
     Dosage: 3 DF, 1X/DAY
     Dates: start: 20190124, end: 20190131
  8. ATORVASTATIN CALCIUM. [Suspect]
     Active Substance: ATORVASTATIN CALCIUM
     Dosage: 40 MG, UNK
     Dates: start: 20130702

REACTIONS (2)
  - Inclusion body myositis [Unknown]
  - Myopathy [Recovered/Resolved]

NARRATIVE: CASE EVENT DATE: 20180702
